FAERS Safety Report 8499501-9 (Version None)
Quarter: 2012Q3

REPORT INFORMATION
  Report Type: 
  Country: None (occurrence: None)
  Receive Date: 20120710
  Receipt Date: 20120628
  Transmission Date: 20120928
  Serious: Yes (Hospitalization)
  Sender: FDA-Public Use
  Company Number: CA-ELI_LILLY_AND_COMPANY-CA201206009689

PATIENT
  Age: 86 Year
  Sex: Female

DRUGS (5)
  1. ATIVAN [Concomitant]
  2. IBUPROFEN [Concomitant]
  3. ASPIRIN [Concomitant]
     Dosage: 81 MG, UNK
  4. FORTEO [Suspect]
     Indication: OSTEOPOROSIS
     Dosage: 20 UG, QD
     Route: 058
     Dates: start: 20111202
  5. LEVOTHYROXINE SODIUM [Concomitant]

REACTIONS (1)
  - PLEURAL EFFUSION [None]
